FAERS Safety Report 7460279-9 (Version None)
Quarter: 2011Q2

REPORT INFORMATION
  Report Type: 
  Country: None (occurrence: None)
  Receive Date: 20110505
  Receipt Date: 20110504
  Transmission Date: 20111010
  Serious: Yes (Hospitalization)
  Sender: FDA-Public Use
  Company Number: US-GILEAD-2010-0033908

PATIENT
  Sex: Female
  Weight: 67.1 kg

DRUGS (14)
  1. ASPIRIN [Concomitant]
     Indication: CEREBROVASCULAR ACCIDENT
     Dates: start: 20090326
  2. AMBIEN [Concomitant]
     Indication: INSOMNIA
     Dates: start: 20090921
  3. FLEXERIL [Concomitant]
     Indication: BACK PAIN
     Dates: start: 20090921
  4. SEROQUEL [Concomitant]
     Indication: DEPRESSION
     Dates: start: 20090326
  5. RITONAVIR [Concomitant]
     Indication: HIV INFECTION
     Route: 048
     Dates: start: 20091203, end: 20101116
  6. CRESTOR [Concomitant]
     Indication: BLOOD CHOLESTEROL INCREASED
     Dates: start: 20090203
  7. DILANTIN [Concomitant]
     Indication: CEREBROVASCULAR ACCIDENT
     Dates: start: 20090326
  8. PERCOCET [Concomitant]
     Indication: HEADACHE
     Route: 048
     Dates: start: 20100830
  9. TRUVADA [Suspect]
     Indication: HIV INFECTION
     Route: 048
     Dates: start: 20091203, end: 20101116
  10. DARUNAVIR [Concomitant]
     Indication: HIV INFECTION
     Route: 048
     Dates: start: 20091203, end: 20101116
  11. CARVEDILOL [Concomitant]
     Indication: HYPERTENSION
  12. ALPRAZOLAM [Concomitant]
     Indication: ANXIETY
     Dates: start: 20090921
  13. LOPRESSOR [Concomitant]
     Indication: HYPERTENSION
     Dates: start: 20090326
  14. PROZAC [Concomitant]
     Indication: DEPRESSION
     Dates: start: 20090728

REACTIONS (2)
  - RENAL FAILURE ACUTE [None]
  - LABORATORY TEST ABNORMAL [None]
